FAERS Safety Report 9068448 (Version 2)
Quarter: 2013Q1

REPORT INFORMATION
  Report Type: Spontaneous
  Country: ES (occurrence: ES)
  Receive Date: 20130206
  Receipt Date: 20130321
  Transmission Date: 20140127
  Serious: Yes (Death, Other)
  Sender: FDA-Public Use
  Company Number: ES-ELI_LILLY_AND_COMPANY-ES201301009295

PATIENT
  Sex: Male
  Weight: 70 kg

DRUGS (4)
  1. FORSTEO [Suspect]
     Indication: OSTEOPOROSIS
     Dosage: 20 UG, QD
     Route: 058
     Dates: start: 20120710
  2. METFORMIN [Concomitant]
     Dosage: 3 DF, QD
     Route: 048
  3. TASMAR [Concomitant]
     Indication: PARKINSON^S DISEASE
     Dosage: UNK, TID
     Route: 048
  4. COMTAN [Concomitant]
     Indication: PARKINSON^S DISEASE
     Dosage: 3 DF, QD
     Route: 048

REACTIONS (3)
  - Craniocerebral injury [Fatal]
  - Spinal fracture [Fatal]
  - Fall [Unknown]
